FAERS Safety Report 4514104-6 (Version None)
Quarter: 2004Q4

REPORT INFORMATION
  Report Type: 
  Country: None (occurrence: None)
  Receive Date: 20041124
  Receipt Date: 20041115
  Transmission Date: 20050328
  Serious: Yes (Death, Hospitalization, Other)
  Sender: FDA-Public Use
  Company Number: 2004-10-0392

PATIENT
  Age: 56 Year
  Sex: Male
  Weight: 58 kg

DRUGS (4)
  1. TEMODAL [Suspect]
     Indication: GLIOMA
     Dosage: 345 MG QD ORAL
     Route: 048
     Dates: start: 20040823, end: 20040827
  2. OGAST [Concomitant]
  3. IMOVANE [Concomitant]
  4. SOLUPRED [Concomitant]

REACTIONS (14)
  - BLOOD CULTURE POSITIVE [None]
  - BONE MARROW DEPRESSION [None]
  - CEREBRAL HAEMORRHAGE [None]
  - DEEP VEIN THROMBOSIS [None]
  - HAEMORRHAGE [None]
  - HEADACHE [None]
  - INTRACRANIAL PRESSURE INCREASED [None]
  - LOSS OF CONSCIOUSNESS [None]
  - LUNG DISORDER [None]
  - LUNG INFECTION [None]
  - MENINGEAL DISORDER [None]
  - PNEUMONIA STREPTOCOCCAL [None]
  - THROMBOCYTOPENIA [None]
  - WHITE BLOOD CELL COUNT DECREASED [None]
